FAERS Safety Report 8325990-6 (Version None)
Quarter: 2012Q2

REPORT INFORMATION
  Report Type: 
  Country: None (occurrence: None)
  Receive Date: 20120501
  Receipt Date: 20120425
  Transmission Date: 20120825
  Serious: No
  Sender: FDA-Public Use
  Company Number: US-BIOGENIDEC-2012BI014480

PATIENT
  Age: 47 Year
  Sex: Male

DRUGS (4)
  1. TYSABRI [Suspect]
     Indication: MULTIPLE SCLEROSIS
     Route: 042
     Dates: start: 20050211, end: 20050211
  2. TYSABRI [Suspect]
     Route: 042
     Dates: start: 20070419, end: 20110328
  3. TYSABRI [Suspect]
     Route: 042
     Dates: start: 20120313
  4. AVONEX [Concomitant]
     Indication: MULTIPLE SCLEROSIS
     Route: 030
     Dates: start: 19970501

REACTIONS (1)
  - WHITE BLOOD CELL COUNT DECREASED [None]
